FAERS Safety Report 4450349-1 (Version None)
Quarter: 2004Q3

REPORT INFORMATION
  Report Type: 
  Country: None (occurrence: None)
  Receive Date: 20040914
  Receipt Date: 20040908
  Transmission Date: 20050211
  Serious: Yes (Life-Threatening, Hospitalization)
  Sender: FDA-Public Use
  Company Number: 2004AP04731

PATIENT
  Age: 65 Year
  Sex: Female

DRUGS (1)
  1. IRESSA [Suspect]
     Indication: NON-SMALL CELL LUNG CANCER
     Dosage: 250 MG DAILY PO
     Route: 048
     Dates: end: 20040908

REACTIONS (3)
  - ACUTE PRERENAL FAILURE [None]
  - DEHYDRATION [None]
  - DIARRHOEA [None]
